FAERS Safety Report 15684962 (Version 2)
Quarter: 2018Q4

REPORT INFORMATION
  Report Type: Report from Study
  Country: DE (occurrence: DE)
  Receive Date: 20181204
  Receipt Date: 20181210
  Transmission Date: 20190205
  Serious: No
  Sender: FDA-Public Use
  Company Number: DE-ROCHE-2218625

PATIENT
  Age: 54 Year
  Sex: Male
  Weight: 96 kg

DRUGS (9)
  1. BETAGALEN [Concomitant]
     Indication: RASH
     Route: 061
     Dates: start: 20170914
  2. ALOE VERA LOTION [Concomitant]
     Indication: SOLAR DERMATITIS
     Route: 061
     Dates: start: 20170827
  3. IBUPROFEN. [Concomitant]
     Active Substance: IBUPROFEN
     Indication: PYREXIA
  4. VEMURAFENIB. [Suspect]
     Active Substance: VEMURAFENIB
     Indication: MALIGNANT MELANOMA
     Route: 048
     Dates: start: 20170823
  5. PANTOPRAZOL [Concomitant]
     Active Substance: PANTOPRAZOLE SODIUM
     Route: 048
     Dates: start: 20170914
  6. IBUPROFEN. [Concomitant]
     Active Substance: IBUPROFEN
     Indication: ARTHRALGIA
     Route: 048
     Dates: start: 20170914
  7. COBIMETINIB. [Suspect]
     Active Substance: COBIMETINIB
     Indication: MALIGNANT MELANOMA
     Route: 048
     Dates: start: 20170823
  8. XYLOMETAZOLINI HYDROCHLORIDUM [Concomitant]
     Indication: NASAL CONGESTION
     Dosage: 0.05 UNIT NOT REPORTED
     Route: 045
  9. ATEZOLIZUMAB. [Suspect]
     Active Substance: ATEZOLIZUMAB
     Indication: MALIGNANT MELANOMA
     Dosage: TOTAL VOLUME OF LAST ATEZOLIZUMAB ADMINISTERED PRIOR TO AE ONSET: 264 ML?DATE OF MOST RECENT DOSE PR
     Route: 042
     Dates: start: 20170920

REACTIONS (1)
  - Hyperthyroidism [Recovered/Resolved]

NARRATIVE: CASE EVENT DATE: 20171115
